FAERS Safety Report 24675030 (Version 1)
Quarter: 2024Q4

REPORT INFORMATION
  Report Type: Spontaneous
  Country: SI (occurrence: SI)
  Receive Date: 20241128
  Receipt Date: 20241128
  Transmission Date: 20250115
  Serious: Yes (Other)
  Sender: ASTELLAS
  Company Number: SI-ASTELLAS-2024-AER-020956

PATIENT
  Age: 62 Year
  Sex: Male

DRUGS (5)
  1. ENFORTUMAB VEDOTIN [Suspect]
     Active Substance: ENFORTUMAB VEDOTIN
     Indication: Transitional cell carcinoma metastatic
     Route: 065
     Dates: start: 202402, end: 2024
  2. ENFORTUMAB VEDOTIN [Suspect]
     Active Substance: ENFORTUMAB VEDOTIN
     Dosage: EV 2 (A+B+C), 3 (A+B+C) AND 4 (A+B+C) CYCLES IN A 50% DOSE
     Route: 065
     Dates: start: 202403, end: 202406
  3. ENFORTUMAB VEDOTIN [Suspect]
     Active Substance: ENFORTUMAB VEDOTIN
     Route: 065
     Dates: start: 2024
  4. NIVOLUMAB [Concomitant]
     Active Substance: NIVOLUMAB
     Indication: Transitional cell carcinoma metastatic
     Dosage: 4 DOSES
     Route: 065
     Dates: start: 202307, end: 202310
  5. NIVOLUMAB [Concomitant]
     Active Substance: NIVOLUMAB
     Route: 065
     Dates: start: 202311, end: 202401

REACTIONS (11)
  - Malignant neoplasm progression [Unknown]
  - Haematochezia [Unknown]
  - Anal inflammation [Unknown]
  - Rash [Unknown]
  - Productive cough [Recovered/Resolved]
  - Fatigue [Recovered/Resolved]
  - Dry eye [Unknown]
  - Nasal dryness [Unknown]
  - Skin ulcer [Unknown]
  - Constipation [Recovered/Resolved]
  - Cough [Unknown]

NARRATIVE: CASE EVENT DATE: 20240101
